FAERS Safety Report 8472467-3 (Version None)
Quarter: 2012Q2

REPORT INFORMATION
  Report Type: 
  Country: None (occurrence: None)
  Receive Date: 20120627
  Receipt Date: 20111027
  Transmission Date: 20120825
  Serious: No
  Sender: FDA-Public Use
  Company Number: US-AMGEN-USASP2011055825

PATIENT
  Sex: Male

DRUGS (3)
  1. EPOGEN [Suspect]
     Indication: RENAL FAILURE CHRONIC
     Dosage: UNK
     Dates: start: 20110101
  2. IRON [Concomitant]
     Dosage: UNK
  3. HEPARIN [Concomitant]
     Dosage: UNK

REACTIONS (1)
  - RASH GENERALISED [None]
